FAERS Safety Report 21932338 (Version 1)
Quarter: 2023Q1

REPORT INFORMATION
  Report Type: Spontaneous
  Country: US (occurrence: None)
  Receive Date: 20230131
  Receipt Date: 20230131
  Transmission Date: 20230417
  Serious: Yes (Other)
  Sender: FDA-Public Use
  Company Number: None

PATIENT
  Sex: 0

DRUGS (2)
  1. TADALAFIL [Suspect]
     Active Substance: TADALAFIL
  2. TADALAFIL [Suspect]
     Active Substance: TADALAFIL

REACTIONS (4)
  - Dyspepsia [None]
  - Chest pain [None]
  - Insomnia [None]
  - Dysphagia [None]
